FAERS Safety Report 12934845 (Version 1)
Quarter: 2016Q4

REPORT INFORMATION
  Report Type: Spontaneous
  Country: US (occurrence: US)
  Receive Date: 20161112
  Receipt Date: 20161112
  Transmission Date: 20170207
  Serious: No
  Sender: FDA-Public Use
  Company Number: US-B.I. PHARMACEUTICALS,INC./RIDGEFIELD-2016-BI-073180

PATIENT
  Age: 54 Year
  Sex: Male

DRUGS (2)
  1. CIALIS [Concomitant]
     Active Substance: TADALAFIL
     Indication: ERECTILE DYSFUNCTION
     Route: 048
  2. PRADAXA [Suspect]
     Active Substance: DABIGATRAN ETEXILATE MESYLATE
     Indication: FACTOR V LEIDEN CARRIER
     Route: 048
     Dates: start: 2012, end: 20161027

REACTIONS (9)
  - Synovial cyst [Not Recovered/Not Resolved]
  - Joint injury [Recovered/Resolved]
  - Off label use [Unknown]
  - Synovial cyst [Unknown]
  - Gait disturbance [Unknown]
  - Pain in extremity [Not Recovered/Not Resolved]
  - Synovial cyst [Recovered/Resolved]
  - Joint stiffness [Not Recovered/Not Resolved]
  - Thrombosis [Not Recovered/Not Resolved]

NARRATIVE: CASE EVENT DATE: 201610
